FAERS Safety Report 12366100 (Version 2)
Quarter: 2016Q2

REPORT INFORMATION
  Report Type: Spontaneous
  Country: US (occurrence: GB)
  Receive Date: 20160513
  Receipt Date: 20160518
  Transmission Date: 20160815
  Serious: No
  Sender: FDA-Public Use
  Company Number: US-009507513-1602GBR009924

PATIENT
  Sex: Female

DRUGS (3)
  1. EMEND [Suspect]
     Active Substance: APREPITANT
  2. DOCETAXEL. [Suspect]
     Active Substance: DOCETAXEL
  3. NEULASTA [Suspect]
     Active Substance: PEGFILGRASTIM

REACTIONS (7)
  - Localised oedema [Unknown]
  - Headache [Recovering/Resolving]
  - Dizziness [Recovered/Resolved]
  - Sensitivity of teeth [Not Recovered/Not Resolved]
  - Arthralgia [Unknown]
  - Pyrexia [Unknown]
  - Diabetes mellitus [Unknown]

NARRATIVE: CASE EVENT DATE: 20160217
